FAERS Safety Report 12847299 (Version 10)
Quarter: 2019Q2

REPORT INFORMATION
  Report Type: Spontaneous
  Country: US (occurrence: US)
  Receive Date: 20161014
  Receipt Date: 20190528
  Transmission Date: 20190711
  Serious: Yes (Other)
  Sender: FDA-Public Use
  Company Number: US-GLAXOSMITHKLINE-US2016149472

PATIENT
  Age: 80 Year
  Sex: Male

DRUGS (4)
  1. ADVAIR DISKUS [Suspect]
     Active Substance: FLUTICASONE PROPIONATE\SALMETEROL XINAFOATE
     Dosage: 250/50UG
     Route: 055
     Dates: start: 19930115
  2. ADVAIR DISKUS [Suspect]
     Active Substance: FLUTICASONE PROPIONATE\SALMETEROL XINAFOATE
     Dosage: UNK
  3. ADVAIR DISKUS [Suspect]
     Active Substance: FLUTICASONE PROPIONATE\SALMETEROL XINAFOATE
     Indication: ASTHMA
     Dosage: 1 PUFF(S), QD
     Route: 055
     Dates: start: 2001
  4. ALBUTEROL. [Concomitant]
     Active Substance: ALBUTEROL

REACTIONS (8)
  - Product dose omission [Unknown]
  - Blood cholesterol increased [Not Recovered/Not Resolved]
  - Rhinorrhoea [Recovered/Resolved]
  - Peripheral swelling [Unknown]
  - Product complaint [Unknown]
  - Intentional underdose [Unknown]
  - Adverse event [Unknown]
  - Pulmonary congestion [Unknown]

NARRATIVE: CASE EVENT DATE: 2014
